FAERS Safety Report 17293176 (Version 1)
Quarter: 2020Q1

REPORT INFORMATION
  Report Type: Spontaneous
  Country: GB (occurrence: GB)
  Receive Date: 20200121
  Receipt Date: 20200121
  Transmission Date: 20200409
  Serious: Yes (Other)
  Sender: FDA-Public Use
  Company Number: GB-ACCORD-169833

PATIENT
  Age: 52 Year
  Sex: Female
  Weight: 112 kg

DRUGS (3)
  1. RAMIPRIL. [Suspect]
     Active Substance: RAMIPRIL
     Indication: PRODUCT USED FOR UNKNOWN INDICATION
     Dates: start: 20191217
  2. LOSARTAN. [Concomitant]
     Active Substance: LOSARTAN
     Dates: start: 20191231
  3. AMOXICILLIN. [Concomitant]
     Active Substance: AMOXICILLIN
     Dates: start: 20191203, end: 20191208

REACTIONS (3)
  - Sleep disorder [Unknown]
  - Hallucination [Unknown]
  - Headache [Unknown]

NARRATIVE: CASE EVENT DATE: 20191231
